FAERS Safety Report 8401406-6 (Version None)
Quarter: 2012Q2

REPORT INFORMATION
  Report Type: 
  Country: None (occurrence: None)
  Receive Date: 20120601
  Receipt Date: 20120529
  Transmission Date: 20120825
  Serious: Yes (Other)
  Sender: FDA-Public Use
  Company Number: PHEH2012US011029

PATIENT
  Sex: Female

DRUGS (8)
  1. ALENDRONATE SODIUM [Suspect]
     Indication: PROPHYLAXIS
  2. ALENDRONATE SODIUM [Suspect]
     Indication: OSTEOPENIA
  3. RECLAST [Suspect]
     Indication: PROPHYLAXIS
  4. FOSAMAX [Suspect]
     Indication: OSTEOPENIA
  5. RECLAST [Suspect]
     Indication: OSTEOPENIA
  6. BONIVA [Suspect]
     Indication: PROPHYLAXIS
  7. BONIVA [Suspect]
     Indication: OSTEOPENIA
  8. FOSAMAX [Suspect]
     Indication: PROPHYLAXIS

REACTIONS (4)
  - FEMUR FRACTURE [None]
  - EMOTIONAL DISTRESS [None]
  - PAIN [None]
  - INJURY [None]
